FAERS Safety Report 5278999-3 (Version None)
Quarter: 2007Q1

REPORT INFORMATION
  Report Type: 
  Country: None (occurrence: None)
  Receive Date: 20070328
  Receipt Date: 20061006
  Transmission Date: 20070707
  Serious: No
  Sender: FDA-Public Use
  Company Number: US-AMGEN-KDL196096

PATIENT
  Sex: Female
  Weight: 100.8 kg

DRUGS (17)
  1. NEULASTA [Suspect]
     Indication: CHEMOTHERAPY
     Route: 058
     Dates: start: 20041101
  2. PROCRIT [Concomitant]
     Route: 058
     Dates: start: 20050103, end: 20051021
  3. PROCRIT [Concomitant]
     Route: 058
     Dates: start: 20050822, end: 20051021
  4. TOPOTECAN [Concomitant]
     Route: 042
     Dates: start: 20040531, end: 20051202
  5. THALIDOMIDE [Concomitant]
     Route: 065
     Dates: start: 20040531, end: 20050620
  6. CARBOPLATIN [Concomitant]
     Route: 065
     Dates: start: 20051202, end: 20060616
  7. DOXIL [Concomitant]
     Route: 065
     Dates: start: 20060616
  8. INFLUENZA VACCINE [Concomitant]
     Dates: start: 20051031, end: 20051031
  9. ZITHROMAX [Concomitant]
     Route: 065
     Dates: start: 20060731, end: 20060831
  10. KEFLEX [Concomitant]
     Route: 065
     Dates: start: 20061004, end: 20061010
  11. SOLU-MEDROL [Concomitant]
     Route: 065
     Dates: start: 20060908
  12. PAXIL [Concomitant]
     Route: 065
  13. WARFARIN SODIUM [Concomitant]
     Route: 065
  14. VITAMINS [Concomitant]
     Route: 065
  15. VITAMIN E [Concomitant]
     Route: 065
  16. SELENIUM SULFIDE [Concomitant]
     Route: 065
  17. PREDNISONE [Concomitant]
     Route: 065

REACTIONS (5)
  - BONE PAIN [None]
  - HEADACHE [None]
  - HERPES ZOSTER [None]
  - PAIN [None]
  - RASH VESICULAR [None]
